FAERS Safety Report 9647221 (Version 2)
Quarter: 2013Q4

REPORT INFORMATION
  Report Type: Spontaneous
  Country: US (occurrence: US)
  Receive Date: 20131027
  Receipt Date: 20131027
  Transmission Date: 20140711
  Serious: No
  Sender: FDA-Public Use
  Company Number: US-PURDUE-USA-2013-0105685

PATIENT
  Age: 36 Year
  Sex: Male

DRUGS (12)
  1. OXYCONTIN (NDA 22-272) [Suspect]
     Indication: INTERVERTEBRAL DISC DEGENERATION
     Dosage: 80 MG, Q12H
     Route: 048
     Dates: start: 20121207, end: 20130307
  2. OXYCONTIN (NDA 22-272) [Suspect]
     Indication: PAIN
  3. OXYCODONE HCL CR TABLETS (SIMILAR TO NDA 22-272) [Suspect]
     Indication: PAIN
     Dosage: 60 MG, Q4- 6H PRN
     Dates: end: 20121207
  4. DILAUDID TABLET [Suspect]
     Indication: PAIN
     Dosage: 8 MG, Q4- 6H PRN
     Dates: end: 20121207
  5. OXYCODONE HCL IMMEDIATE RELEASE (91-490) [Suspect]
     Indication: BREAKTHROUGH PAIN
     Dosage: 30 MG, Q6H PRN
     Dates: start: 20121207
  6. MS CONTIN TABLETS [Concomitant]
     Indication: PAIN
     Dosage: 100 MG, SEE TEXT
     Dates: start: 20130503
  7. SOMA [Concomitant]
     Indication: PRODUCT USED FOR UNKNOWN INDICATION
     Dosage: 250 MG, HS
  8. XANAX [Concomitant]
     Indication: PRODUCT USED FOR UNKNOWN INDICATION
     Dosage: 1 MG, TID
  9. SKELAXIN                           /00611501/ [Concomitant]
     Indication: PRODUCT USED FOR UNKNOWN INDICATION
     Dosage: 800 MG, TID PRN
     Dates: start: 20091207
  10. IBUPROFEN [Concomitant]
     Indication: PRODUCT USED FOR UNKNOWN INDICATION
     Dosage: 600 MG, TID PRN
     Dates: start: 20121207
  11. NEURONTIN [Concomitant]
     Indication: PRODUCT USED FOR UNKNOWN INDICATION
     Dosage: 300 MG, SEE TEXT
     Dates: start: 20121207
  12. ALBUTEROL HFA [Concomitant]
     Indication: PRODUCT USED FOR UNKNOWN INDICATION
     Dosage: 90 MCG, Q4- 6H PRN
     Dates: start: 20130114

REACTIONS (12)
  - Drug withdrawal syndrome [Unknown]
  - Back pain [Unknown]
  - Pain [Unknown]
  - Myalgia [Unknown]
  - Arthralgia [Unknown]
  - Anxiety [Unknown]
  - Hypoaesthesia [Unknown]
  - Arthritis [Unknown]
  - Spinal column stenosis [Unknown]
  - Somnolence [Unknown]
  - Fatigue [Unknown]
  - Sleep disorder [Unknown]
